FAERS Safety Report 10277737 (Version 2)
Quarter: 2014Q4

REPORT INFORMATION
  Report Type: Spontaneous
  Country: JP (occurrence: JP)
  Receive Date: 20140704
  Receipt Date: 20141014
  Transmission Date: 20150528
  Serious: Yes (Death)
  Sender: FDA-Public Use
  Company Number: JP-PFIZER INC-2014181868

PATIENT
  Sex: Female

DRUGS (6)
  1. CAMPTO [Suspect]
     Active Substance: IRINOTECAN
     Indication: RECTAL CANCER
     Dosage: UNK, ONCE A DAY
     Route: 041
     Dates: start: 20120315, end: 20140509
  2. 5-FU [Suspect]
     Active Substance: FLUOROURACIL
     Indication: RECTAL CANCER
     Dosage: UNK, ONCE A DAY
     Route: 040
     Dates: start: 20120315, end: 20140509
  3. 5-FU [Suspect]
     Active Substance: FLUOROURACIL
     Dosage: UNKNOWN CYCLE WAS ADMINISTERED
     Dates: start: 20140509
  4. 5-FU [Suspect]
     Active Substance: FLUOROURACIL
     Dosage: UNK, ONCE IN 2 DAYS
     Route: 041
     Dates: start: 20120315, end: 20140509
  5. LEVOFOLINATE [Concomitant]
     Active Substance: LEVOLEUCOVORIN CALCIUM
     Dosage: UNK
     Route: 042
     Dates: start: 20120315, end: 20140509
  6. CAMPTO [Suspect]
     Active Substance: IRINOTECAN
     Dosage: UNKNOWN CYCLE WAS ADMINISTERED
     Dates: start: 20140509

REACTIONS (1)
  - Mechanical ileus [Fatal]

NARRATIVE: CASE EVENT DATE: 20140514
